FAERS Safety Report 4322872-1 (Version None)
Quarter: 2004Q1

REPORT INFORMATION
  Report Type: 
  Country: None (occurrence: None)
  Receive Date: 20040322
  Receipt Date: 20040309
  Transmission Date: 20041129
  Serious: Yes (Disabling)
  Sender: FDA-Public Use
  Company Number: 2004-113449-NL

PATIENT
  Age: 37 Year
  Sex: Female

DRUGS (2)
  1. MIRTAZAPINE [Suspect]
     Indication: DYSTHYMIC DISORDER
     Dosage: 15 MG
     Route: 048
     Dates: start: 20040210, end: 20040212
  2. LORMETAZEPAM [Concomitant]

REACTIONS (5)
  - BULIMIA NERVOSA [None]
  - DEPRESSED LEVEL OF CONSCIOUSNESS [None]
  - HALLUCINATION, AUDITORY [None]
  - ILLUSION [None]
  - INSOMNIA [None]
